FAERS Safety Report 4501340-8 (Version None)
Quarter: 2004Q3

REPORT INFORMATION
  Report Type: 
  Country: None (occurrence: None)
  Receive Date: 20040928
  Receipt Date: 20040813
  Transmission Date: 20050211
  Serious: No
  Sender: FDA-Public Use
  Company Number: 04P-163-0270483-00

PATIENT
  Age: 66 Year
  Sex: Female
  Weight: 38.5557 kg

DRUGS (3)
  1. HUMIRA [Suspect]
     Indication: RHEUMATOID ARTHRITIS
     Dosage: 40 MG, SUBCUTANEOUS
     Route: 058
     Dates: start: 20040507
  2. PROPRANOLOL HYDROCHLORIDE [Concomitant]
  3. RABEPRAZOLE SODIUM [Concomitant]

REACTIONS (1)
  - FUNGAL INFECTION [None]
